FAERS Safety Report 9163148 (Version 1)
Quarter: 2013Q1

REPORT INFORMATION
  Report Type: Spontaneous
  Country: DK (occurrence: None)
  Receive Date: 20130227
  Receipt Date: 20130227
  Transmission Date: 20140127
  Serious: Yes (Other)
  Sender: FDA-Public Use
  Company Number: 2013MA001341

PATIENT
  Sex: Male

DRUGS (1)
  1. SPIRONOLACTONE [Suspect]
     Dosage: 100 MG; UNK; UNK

REACTIONS (6)
  - Malaise [None]
  - Renal impairment [None]
  - Drug dispensing error [None]
  - Wrong drug administered [None]
  - Product outer packaging issue [None]
  - Medication error [None]
